FAERS Safety Report 18135259 (Version 16)
Quarter: 2021Q4

REPORT INFORMATION
  Report Type: Spontaneous
  Country: US (occurrence: US)
  Receive Date: 20200811
  Receipt Date: 20211203
  Transmission Date: 20220304
  Serious: Yes (Other)
  Sender: FDA-Public Use
  Company Number: US-PFIZER INC-2018401215

PATIENT
  Age: 76 Year
  Sex: Male
  Weight: 95.25 kg

DRUGS (5)
  1. DILANTIN [Suspect]
     Active Substance: PHENYTOIN
     Indication: Seizure
     Dosage: 400 MG, DAILY
     Route: 048
  2. DILANTIN [Suspect]
     Active Substance: PHENYTOIN
     Indication: Epilepsy
     Dosage: 600 MG, DAILY
     Route: 048
  3. DILANTIN [Suspect]
     Active Substance: PHENYTOIN
     Dosage: 200 MG, 2X/DAY (2 CAPSULES TWICE A DAY)
     Route: 048
  4. CELONTIN [Concomitant]
     Active Substance: METHSUXIMIDE
     Indication: Seizure
     Dosage: 300 MG, 2X/DAY(1 BY MOUTH TWICE A DAY)
     Route: 048
  5. PHENOBARBITAL [Concomitant]
     Active Substance: PHENOBARBITAL
     Indication: Seizure
     Dosage: 96.6 MG, DAILY (ONE IN THE MORNING AND 2 AT NIGHT)

REACTIONS (2)
  - Cataract [Unknown]
  - Anticonvulsant drug level abnormal [Unknown]
